FAERS Safety Report 8885602 (Version 3)
Quarter: 2013Q1

REPORT INFORMATION
  Report Type: Spontaneous
  Country: US (occurrence: US)
  Receive Date: 20121102
  Receipt Date: 20130123
  Transmission Date: 20140127
  Serious: No
  Sender: FDA-Public Use
  Company Number: US-009507513-1210USA014737

PATIENT
  Age: 56 None
  Sex: Male

DRUGS (4)
  1. JANUVIA [Suspect]
     Indication: DIABETES MELLITUS
     Dosage: 100 MG ONCE A DAY
     Route: 048
     Dates: start: 20121016, end: 20121030
  2. LANTUS [Concomitant]
  3. LISINOPRIL [Concomitant]
  4. ASPIRIN [Concomitant]
     Dosage: DAILY

REACTIONS (12)
  - Lower limb fracture [Recovering/Resolving]
  - Musculoskeletal stiffness [Recovering/Resolving]
  - Local swelling [Recovering/Resolving]
  - Pain in extremity [Recovering/Resolving]
  - Fall [Recovering/Resolving]
  - Back pain [Recovering/Resolving]
  - Abdominal rigidity [Recovering/Resolving]
  - Drug hypersensitivity [Recovering/Resolving]
  - Abdominal pain [Recovering/Resolving]
  - Constipation [Recovering/Resolving]
  - Headache [Recovering/Resolving]
  - Drug dose omission [Unknown]
